FAERS Safety Report 10231246 (Version 1)
Quarter: 2014Q2

REPORT INFORMATION
  Report Type: Spontaneous
  Country: IT (occurrence: IT)
  Receive Date: 20140611
  Receipt Date: 20140611
  Transmission Date: 20141212
  Serious: Yes (Other)
  Sender: FDA-Public Use
  Company Number: IT-ACTAVIS-2014-12737

PATIENT
  Age: 51 Year
  Sex: Female

DRUGS (2)
  1. CLOBETASOL PROPIONATE (AMALLC) [Suspect]
     Indication: ORAL LICHEN PLANUS
     Dosage: 0.05 %, UNK; IN 4% HYDROXYETHYLCELLULOSE BIOADHESIVE GEL
     Route: 061
     Dates: start: 200411
  2. BETAMETHASONE (UNKNOWN) [Suspect]
     Indication: ORAL LICHEN PLANUS
     Dosage: UNK
     Route: 061

REACTIONS (2)
  - Hypothalamic pituitary adrenal axis suppression [Recovered/Resolved]
  - Cushing^s syndrome [Recovering/Resolving]
